FAERS Safety Report 4413105-6 (Version None)
Quarter: 2004Q3

REPORT INFORMATION
  Report Type: 
  Country: None (occurrence: None)
  Receive Date: 20040802
  Receipt Date: 20040802
  Transmission Date: 20050211
  Serious: Yes (Hospitalization)
  Sender: FDA-Public Use
  Company Number: None

PATIENT
  Age: 80 Year
  Sex: Female
  Weight: 43.0917 kg

DRUGS (2)
  1. DILANTIN [Suspect]
     Indication: CONVULSION PROPHYLAXIS
     Dosage: ONCE A DAY ORAL
     Route: 048
     Dates: start: 20040623, end: 20040727
  2. DILANTIN [Suspect]
     Indication: HAEMORRHAGIC STROKE
     Dosage: ONCE A DAY ORAL
     Route: 048
     Dates: start: 20040623, end: 20040727

REACTIONS (2)
  - ANTICONVULSANT DRUG LEVEL INCREASED [None]
  - RASH GENERALISED [None]
